FAERS Safety Report 10901853 (Version 1)
Quarter: 2015Q1

REPORT INFORMATION
  Report Type: Spontaneous
  Country: SI (occurrence: SI)
  Receive Date: 20150310
  Receipt Date: 20150310
  Transmission Date: 20150721
  Serious: Yes (Other)
  Sender: FDA-Public Use
  Company Number: SI-GLAXOSMITHKLINE-SI2014GSK038193

PATIENT
  Age: 70 Year
  Sex: Female

DRUGS (1)
  1. VALTREX [Suspect]
     Active Substance: VALACYCLOVIR HYDROCHLORIDE
     Indication: OPHTHALMIC HERPES ZOSTER
     Dosage: 3000 MG, QD

REACTIONS (4)
  - Overdose [Unknown]
  - Altered state of consciousness [Recovered/Resolved]
  - Neurological symptom [Recovered/Resolved]
  - Encephalopathy [Recovered/Resolved]
